FAERS Safety Report 9125418 (Version 1)
Quarter: 2013Q1

REPORT INFORMATION
  Report Type: Spontaneous
  Country: US (occurrence: US)
  Receive Date: 20130227
  Receipt Date: 20130227
  Transmission Date: 20140127
  Serious: Yes (Other)
  Sender: FDA-Public Use
  Company Number: US-GLAXOSMITHKLINE-A1013669A

PATIENT
  Sex: Female

DRUGS (1)
  1. LAMICTAL [Suspect]

REACTIONS (11)
  - Stevens-Johnson syndrome [Unknown]
  - Rheumatoid arthritis [Unknown]
  - Skin exfoliation [Unknown]
  - Eye injury [Unknown]
  - Lacrimal disorder [Unknown]
  - Dry eye [Unknown]
  - Photophobia [Unknown]
  - Unemployment [Unknown]
  - Cataract [Unknown]
  - Decreased immune responsiveness [Unknown]
  - Infertility female [Unknown]
